FAERS Safety Report 4976621-4 (Version None)
Quarter: 2006Q2

REPORT INFORMATION
  Report Type: 
  Country: None (occurrence: None)
  Receive Date: 20060419
  Receipt Date: 20060403
  Transmission Date: 20061013
  Serious: Yes (Hospitalization)
  Sender: FDA-Public Use
  Company Number: IT-BRISTOL-MYERS SQUIBB COMPANY-13334651

PATIENT
  Age: 60 Year
  Sex: Female
  Weight: 69 kg

DRUGS (6)
  1. CYCLOPHOSPHAMIDE [Suspect]
     Indication: NEOPLASM MALIGNANT
     Route: 042
     Dates: start: 20060324, end: 20060324
  2. METHOTREXATE [Suspect]
     Indication: NEOPLASM MALIGNANT
     Route: 042
     Dates: start: 20060324, end: 20060324
  3. CAPECITABINE [Suspect]
     Indication: NEOPLASM MALIGNANT
     Route: 048
     Dates: start: 20060324, end: 20060324
  4. EXEMESTANE [Suspect]
     Indication: NEOPLASM MALIGNANT
     Route: 048
     Dates: start: 20060224, end: 20060224
  5. ANTIDIABETIC [Concomitant]
     Route: 048
     Dates: start: 20051222
  6. DIURETIC [Concomitant]
     Route: 048
     Dates: start: 20051222

REACTIONS (3)
  - DEHYDRATION [None]
  - ORAL INTAKE REDUCED [None]
  - VOMITING [None]
